FAERS Safety Report 9454252 (Version 1)
Quarter: 2013Q3

REPORT INFORMATION
  Report Type: Spontaneous
  Country: US (occurrence: None)
  Receive Date: 20130809
  Receipt Date: 20130809
  Transmission Date: 20140515
  Serious: Yes (Life-Threatening)
  Sender: FDA-Public Use
  Company Number: None

PATIENT
  Age: 28 Year
  Sex: Female
  Weight: 65.77 kg

DRUGS (1)
  1. BUPROPION SR 150MG [Suspect]
     Indication: SMOKING CESSATION THERAPY
     Route: 048
     Dates: start: 20130731, end: 20130808

REACTIONS (13)
  - Dry mouth [None]
  - Psychomotor hyperactivity [None]
  - Hyperhidrosis [None]
  - Headache [None]
  - Depression [None]
  - Suicidal ideation [None]
  - Hallucination [None]
  - Crying [None]
  - Panic attack [None]
  - Dyspnoea [None]
  - Dissociation [None]
  - Dysphonia [None]
  - Insomnia [None]
